FAERS Safety Report 5208926-6 (Version None)
Quarter: 2007Q1

REPORT INFORMATION
  Report Type: 
  Country: None (occurrence: None)
  Receive Date: 20070111
  Receipt Date: 20070111
  Transmission Date: 20070707
  Serious: Yes (Hospitalization)
  Sender: FDA-Public Use
  Company Number: None

PATIENT
  Age: 74 Year
  Sex: Male
  Weight: 60.6 kg

DRUGS (1)
  1. ENOXAPARIN SODIUM [Suspect]
     Indication: ACUTE MYOCARDIAL INFARCTION
     Dosage: 120MG, 60MG BID, SUBCUTAN
     Route: 058
     Dates: start: 20061009, end: 20061010

REACTIONS (1)
  - THROMBOCYTOPENIA [None]
